FAERS Safety Report 11999803 (Version 1)
Quarter: 2016Q1

REPORT INFORMATION
  Report Type: Spontaneous
  Country: US (occurrence: None)
  Receive Date: 20160203
  Receipt Date: 20160203
  Transmission Date: 20160526
  Serious: Yes (Other)
  Sender: FDA-Public Use
  Company Number: None

PATIENT
  Age: 58 Year
  Sex: Male

DRUGS (1)
  1. CAPECITABINE 500MG TEVA [Suspect]
     Active Substance: CAPECITABINE
     Indication: PANCREATIC CARCINOMA
     Dosage: 1500MG BID QDX7DAYS, 7DAYS OFF PO
     Route: 048
     Dates: start: 20151005, end: 20160129

REACTIONS (1)
  - Oedema [None]

NARRATIVE: CASE EVENT DATE: 20160201
